FAERS Safety Report 8960944 (Version 1)
Quarter: 2012Q4

REPORT INFORMATION
  Report Type: 
  Country: IT (occurrence: IT)
  Receive Date: 20121212
  Receipt Date: 20121212
  Transmission Date: 20130627
  Serious: Yes (Hospitalization)
  Sender: FDA-Public Use
  Company Number: IT-BAXTER-2012BAX026334

PATIENT
  Age: 59 Year
  Sex: Male

DRUGS (6)
  1. HOLOXAN [Suspect]
     Indication: HODGKIN^S LYMPHOMA
     Route: 065
     Dates: start: 20121024, end: 20121027
  2. NAVELBINE [Suspect]
     Indication: HODGKIN^S LYMPHOMA
     Route: 042
     Dates: start: 20121024, end: 20121027
  3. GEMCITABINE [Suspect]
     Indication: HODGKIN^S LYMPHOMA
     Route: 042
     Dates: start: 20121024, end: 20121027
  4. ZEFFIX [Concomitant]
     Indication: DRUG USE FOR UNKNOWN INDICATION
     Dosage: 1 POSOLOGY DOSE
     Route: 048
     Dates: start: 20121022, end: 20121130
  5. PANTORC [Concomitant]
     Indication: DRUG USE FOR UNKNOWN INDICATION
     Dosage: 1 POSOLOGY DOSE
     Route: 048
     Dates: start: 20121022, end: 20121130
  6. VALPRESSION [Concomitant]
     Indication: DRUG USE FOR UNKNOWN INDICATION
     Dosage: 1 POSOLOGY DOSE
     Route: 048
     Dates: start: 2007

REACTIONS (1)
  - Transaminases increased [Recovered/Resolved]
